FAERS Safety Report 5248023-7 (Version None)
Quarter: 2007Q1

REPORT INFORMATION
  Report Type: 
  Country: None (occurrence: None)
  Receive Date: 20070222
  Receipt Date: 20070214
  Transmission Date: 20070707
  Serious: Yes (Life-Threatening, Other)
  Sender: FDA-Public Use
  Company Number: TUK2007A00015

PATIENT
  Age: 60 Year
  Sex: Male

DRUGS (5)
  1. ACTOS [Suspect]
     Indication: DIABETES MELLITUS NON-INSULIN-DEPENDENT
     Dosage: 15 MG UNK.
     Dates: start: 20041124, end: 20041203
  2. METFORMIN HCL [Concomitant]
  3. ACARBOSE [Concomitant]
  4. GLICLAZIDE [Concomitant]
  5. INSULIN [Concomitant]

REACTIONS (1)
  - CARDIAC FAILURE [None]
